FAERS Safety Report 21751723 (Version 1)
Quarter: 2022Q4

REPORT INFORMATION
  Report Type: Spontaneous
  Country: CN (occurrence: CN)
  Receive Date: 20221220
  Receipt Date: 20221220
  Transmission Date: 20230113
  Serious: Yes (Other)
  Sender: FDA-Public Use
  Company Number: ALC2022CN005719

PATIENT
  Age: 64 Year
  Sex: Female

DRUGS (1)
  1. PROPARACAINE HYDROCHLORIDE [Suspect]
     Active Substance: PROPARACAINE HYDROCHLORIDE
     Indication: Anaesthesia
     Dosage: 1 DRP, BID
     Route: 047
     Dates: start: 20221129, end: 20221129

REACTIONS (1)
  - Corneal oedema [Recovering/Resolving]

NARRATIVE: CASE EVENT DATE: 20221129
